FAERS Safety Report 9116938 (Version 2)
Quarter: 2014Q2

REPORT INFORMATION
  Report Type: Spontaneous
  Country: US (occurrence: US)
  Receive Date: 20130225
  Receipt Date: 20140616
  Transmission Date: 20141212
  Serious: No
  Sender: FDA-Public Use
  Company Number: US-PFIZER INC-2013068145

PATIENT
  Age: 65 Year
  Sex: Male
  Weight: 79.37 kg

DRUGS (5)
  1. CHANTIX [Suspect]
     Indication: SMOKING CESSATION THERAPY
     Dosage: 0.5 MG, 1X/DAY
     Route: 048
     Dates: start: 201302, end: 201302
  2. CHANTIX [Suspect]
     Dosage: 1 MG, 2X/DAY
     Route: 048
     Dates: start: 201302
  3. ZOLOFT [Concomitant]
     Indication: DEPRESSION
     Dosage: UNK
  4. VITAMIN C [Concomitant]
     Dosage: UNK
  5. VITAMIN E [Concomitant]
     Dosage: UNK

REACTIONS (2)
  - Abdominal distension [Unknown]
  - Abnormal dreams [Unknown]
